FAERS Safety Report 8727991 (Version 2)
Quarter: 2014Q4

REPORT INFORMATION
  Report Type: Spontaneous
  Country: US (occurrence: US)
  Receive Date: 20120816
  Receipt Date: 20141130
  Transmission Date: 20150529
  Serious: Yes (Other)
  Sender: FDA-Public Use
  Company Number: PHEH2011US013186

PATIENT
  Sex: Female

DRUGS (7)
  1. PROMETHAZINE [Suspect]
     Active Substance: PROMETHAZINE\PROMETHAZINE HYDROCHLORIDE
     Indication: PRODUCT USED FOR UNKNOWN INDICATION
     Dosage: UNK UKN, UNK
     Route: 065
  2. ZELNORM [Suspect]
     Active Substance: TEGASEROD MALEATE
     Indication: IMPAIRED GASTRIC EMPTYING
     Dosage: 1 DF, BID
     Route: 065
     Dates: start: 200802
  3. KLONOPIN [Concomitant]
     Active Substance: CLONAZEPAM
     Indication: PRODUCT USED FOR UNKNOWN INDICATION
     Dosage: UNK UKN, UNK
     Route: 065
  4. ZELNORM [Suspect]
     Active Substance: TEGASEROD MALEATE
     Indication: OFF LABEL USE
  5. ERYTHROMYCIN. [Concomitant]
     Active Substance: ERYTHROMYCIN
     Indication: PRODUCT USED FOR UNKNOWN INDICATION
     Dosage: 1 DF, QD
     Route: 065
  6. TRANSDERM SCOP [Concomitant]
     Active Substance: SCOPOLAMINE
     Indication: VOMITING
     Dosage: UNK UKN, UNK
     Route: 065
  7. LINZESS [Concomitant]
     Active Substance: LINACLOTIDE
     Indication: CONSTIPATION
     Dosage: UNK UKN, UNK
     Route: 065

REACTIONS (6)
  - Influenza like illness [Unknown]
  - Weight decreased [Unknown]
  - Feeding disorder [Unknown]
  - Pain [Unknown]
  - Nausea [Unknown]
  - Suicidal ideation [Unknown]
